FAERS Safety Report 12525588 (Version 1)
Quarter: 2016Q3

REPORT INFORMATION
  Report Type: Spontaneous
  Country: US (occurrence: US)
  Receive Date: 20160705
  Receipt Date: 20160705
  Transmission Date: 20161109
  Serious: No
  Sender: FDA-Public Use
  Company Number: US-JNJFOC-20160518616

PATIENT
  Age: 15 Year
  Sex: Female
  Weight: 49.9 kg

DRUGS (1)
  1. ORTHO-NOVUM 777 [Suspect]
     Active Substance: ETHINYL ESTRADIOL\NORETHINDRONE
     Indication: ACNE
     Route: 048

REACTIONS (4)
  - Product use issue [Unknown]
  - Premenstrual syndrome [Unknown]
  - Off label use [Unknown]
  - Acne [Unknown]

NARRATIVE: CASE EVENT DATE: 2015
